FAERS Safety Report 7741624-3 (Version None)
Quarter: 2011Q3

REPORT INFORMATION
  Report Type: 
  Country: None (occurrence: None)
  Receive Date: 20110911
  Receipt Date: 20110831
  Transmission Date: 20111222
  Serious: Yes (Hospitalization)
  Sender: FDA-Public Use
  Company Number: FR-CELGENEUS-056-21880-11090063

PATIENT
  Sex: Male

DRUGS (9)
  1. REVLIMID [Suspect]
     Route: 048
     Dates: start: 20100618, end: 20100701
  2. ACETAMINOPHEN [Concomitant]
     Indication: PAIN
     Route: 048
     Dates: start: 20090201
  3. UN-ALFA [Concomitant]
     Indication: PAIN
     Route: 048
     Dates: start: 20090201
  4. ASPIRIN [Concomitant]
     Dosage: 160 MILLIGRAM
     Route: 048
     Dates: start: 20080601, end: 20110401
  5. MAGNE B6 [Concomitant]
     Dosage: 1 DOSAGE FORMS
     Route: 048
  6. FORLAX [Concomitant]
     Dosage: 10 GRAM
     Route: 048
  7. REVLIMID [Suspect]
     Indication: MULTIPLE MYELOMA
     Route: 048
     Dates: start: 20090101
  8. PHENOXYMETHYL PENICILLIN [Concomitant]
     Indication: PAIN
     Dosage: 1 MILLILITER
     Route: 065
  9. TADENAN [Concomitant]
     Dosage: 100 MILLIGRAM
     Route: 048

REACTIONS (1)
  - GASTRIC CANCER STAGE 0 [None]
